FAERS Safety Report 7763028-X (Version None)
Quarter: 2011Q3

REPORT INFORMATION
  Report Type: 
  Country: None (occurrence: None)
  Receive Date: 20110920
  Receipt Date: 20110914
  Transmission Date: 20111222
  Serious: Yes (Other)
  Sender: FDA-Public Use
  Company Number: US-ROXANE LABORATORIES, INC.-2011-RO-01275RO

PATIENT
  Age: 48 Year
  Sex: Female

DRUGS (3)
  1. ANTI-HISTAMINES [Concomitant]
     Indication: RHINITIS ALLERGIC
     Route: 048
  2. FLUTICASONE PROPIONATE [Suspect]
     Indication: RHINITIS ALLERGIC
     Route: 045
  3. FLUTICASONE PROPIONATE [Suspect]
     Indication: SINUSITIS

REACTIONS (1)
  - CHORIORETINOPATHY [None]
